FAERS Safety Report 12268146 (Version 8)
Quarter: 2016Q4

REPORT INFORMATION
  Report Type: Report from Study
  Country: US (occurrence: US)
  Receive Date: 20160414
  Receipt Date: 20161216
  Transmission Date: 20170207
  Serious: Yes (Death, Hospitalization, Other)
  Sender: FDA-Public Use
  Company Number: US-ACTELION-A-US2016-134506

PATIENT
  Age: 65 Year
  Sex: Female

DRUGS (5)
  1. LETAIRIS [Concomitant]
     Active Substance: AMBRISENTAN
     Dosage: 10 MG, QD
     Route: 065
     Dates: start: 201408
  2. VENTAVIS [Suspect]
     Active Substance: ILOPROST
     Indication: PULMONARY HYPERTENSION
     Dosage: 5 MCG, 6-9X /DAY
     Route: 055
     Dates: start: 20160218
  3. VENTAVIS [Suspect]
     Active Substance: ILOPROST
     Dosage: UNK, 6-9 PER DAY
     Route: 055
     Dates: start: 201412
  4. REVATIO [Concomitant]
     Active Substance: SILDENAFIL CITRATE
     Dosage: 20 MG, TID
     Route: 065
     Dates: start: 201312
  5. OXYGEN. [Concomitant]
     Active Substance: OXYGEN
     Dosage: 15 L/MIN, UNK

REACTIONS (10)
  - Dyspnoea [Unknown]
  - Pulmonary hypertension [Unknown]
  - Disease progression [Fatal]
  - Heart rate abnormal [Unknown]
  - Interstitial lung disease [Unknown]
  - Lung disorder [Unknown]
  - Respiratory failure [Recovering/Resolving]
  - Respiratory failure [Fatal]
  - Loss of consciousness [Fatal]
  - Lung neoplasm malignant [Unknown]

NARRATIVE: CASE EVENT DATE: 20160830
